FAERS Safety Report 8306950-8 (Version None)
Quarter: 2012Q2

REPORT INFORMATION
  Report Type: 
  Country: None (occurrence: None)
  Receive Date: 20120424
  Receipt Date: 20120412
  Transmission Date: 20120825
  Serious: Yes (Hospitalization)
  Sender: FDA-Public Use
  Company Number: SE-JNJFOC-20120314385

PATIENT
  Age: 39 Year
  Sex: Female

DRUGS (2)
  1. SANDIMMUNE [Concomitant]
     Route: 065
     Dates: start: 20110928
  2. REMICADE [Suspect]
     Indication: SPONDYLITIS
     Route: 042
     Dates: start: 20110908, end: 20120130

REACTIONS (1)
  - HEPATITIS [None]
